FAERS Safety Report 8069830-1 (Version None)
Quarter: 2012Q1

REPORT INFORMATION
  Report Type: 
  Country: None (occurrence: None)
  Receive Date: 20120125
  Receipt Date: 20120125
  Transmission Date: 20120608
  Serious: No
  Sender: FDA-Public Use
  Company Number: None

PATIENT
  Age: 25 Year
  Sex: Female
  Weight: 73.028 kg

DRUGS (1)
  1. BEYAZ [Suspect]
     Route: 002

REACTIONS (5)
  - DEPRESSED MOOD [None]
  - ANGER [None]
  - WEIGHT INCREASED [None]
  - CRYING [None]
  - MOOD SWINGS [None]
